FAERS Safety Report 12676541 (Version 1)
Quarter: 2016Q3

REPORT INFORMATION
  Report Type: Spontaneous
  Country: US (occurrence: US)
  Receive Date: 20160823
  Receipt Date: 20160823
  Transmission Date: 20161109
  Serious: No
  Sender: FDA-Public Use
  Company Number: US-GLAXOSMITHKLINE-US2016122124

PATIENT
  Age: 58 Year
  Sex: Female

DRUGS (1)
  1. TRANSDERM SCOP [Suspect]
     Active Substance: SCOPOLAMINE
     Indication: DIZZINESS
     Dosage: UNK
     Dates: start: 201606

REACTIONS (2)
  - Application site irritation [Unknown]
  - Off label use [Unknown]
